FAERS Safety Report 7479393-7 (Version None)
Quarter: 2011Q2

REPORT INFORMATION
  Report Type: 
  Country: None (occurrence: None)
  Receive Date: 20110513
  Receipt Date: 20110510
  Transmission Date: 20111010
  Serious: Yes (Life-Threatening)
  Sender: FDA-Public Use
  Company Number: FR-PFIZER INC-2011099428

PATIENT
  Age: 76 Year
  Sex: Male

DRUGS (4)
  1. ALLOPURINOL [Concomitant]
     Dosage: 1 DF, 1X/DAY
  2. ATENOLOL [Concomitant]
     Dosage: 1 DF, 1X/DAY
  3. SUTENT [Suspect]
     Indication: RENAL CELL CARCINOMA
     Dosage: 37.5 MG, 1X/DAY, CYCLIC (4 WEEKS OUT OF 6)
     Route: 048
     Dates: start: 20101101
  4. MICARDIS HCT [Concomitant]
     Dosage: 1 DF, 1X/DAY

REACTIONS (2)
  - ACUTE MYELOID LEUKAEMIA [None]
  - NEOPLASM MALIGNANT [None]
